FAERS Safety Report 4326176-2 (Version None)
Quarter: 2004Q1

REPORT INFORMATION
  Report Type: 
  Country: None (occurrence: None)
  Receive Date: 20040324
  Receipt Date: 20040309
  Transmission Date: 20041129
  Serious: Yes (Hospitalization)
  Sender: FDA-Public Use
  Company Number: 2004AP01439

PATIENT
  Sex: Male

DRUGS (13)
  1. OMEPRAZOLE [Suspect]
  2. CLARITHROMYCIN [Suspect]
  3. LASIX [Concomitant]
  4. LOXONIN [Concomitant]
  5. DIPYRIDAMOLE [Concomitant]
  6. MUCODYNE [Concomitant]
  7. ROCALTROL [Concomitant]
  8. SEREVENT [Concomitant]
  9. QVAR 40 [Concomitant]
  10. FLIVAS [Concomitant]
  11. SULTANOL [Concomitant]
  12. MENDON [Concomitant]
  13. ATROVENT [Concomitant]

REACTIONS (1)
  - EOSINOPHIL COUNT INCREASED [None]
